FAERS Safety Report 6576633-3 (Version None)
Quarter: 2010Q1

REPORT INFORMATION
  Report Type: 
  Country: None (occurrence: None)
  Receive Date: 20100210
  Receipt Date: 20100202
  Transmission Date: 20100710
  Serious: Yes (Hospitalization, Other)
  Sender: FDA-Public Use
  Company Number: US-PFIZER INC-2010012553

PATIENT
  Sex: Male
  Weight: 103.4 kg

DRUGS (4)
  1. SUTENT [Suspect]
     Indication: METASTATIC RENAL CELL CARCINOMA
     Dosage: 50 MG, DAILY X28 DAYS Q 42 DAYS
     Route: 048
     Dates: start: 20090301
  2. GLIPIZIDE [Concomitant]
     Indication: DIABETES MELLITUS
     Dosage: UNK
     Route: 048
  3. METOPROLOL TARTRATE [Concomitant]
     Indication: BLOOD PRESSURE
     Dosage: UNK
  4. COZAAR [Concomitant]
     Indication: BLOOD PRESSURE
     Route: 048

REACTIONS (4)
  - BLOOD PRESSURE INCREASED [None]
  - NEUTROPENIC SEPSIS [None]
  - PALMAR-PLANTAR ERYTHRODYSAESTHESIA SYNDROME [None]
  - RIB FRACTURE [None]
